FAERS Safety Report 4495794-3 (Version None)
Quarter: 2004Q4

REPORT INFORMATION
  Report Type: 
  Country: None (occurrence: None)
  Receive Date: 20041104
  Receipt Date: 20041022
  Transmission Date: 20050328
  Serious: Yes (Disabling)
  Sender: FDA-Public Use
  Company Number: 2004_000087

PATIENT
  Age: 58 Year
  Sex: Female

DRUGS (5)
  1. DEPOCYT [Suspect]
     Indication: LYMPHOMA
     Dosage: 50 MG; EVERY OTHER WEEK; INTRATHECAL
     Route: 037
     Dates: start: 20041001, end: 20041015
  2. DEPOCYT [Suspect]
     Indication: MENINGITIS
     Dosage: 50 MG; EVERY OTHER WEEK; INTRATHECAL
     Route: 037
     Dates: start: 20041001, end: 20041015
  3. METHOTREXATE [Concomitant]
  4. CYTARABINE [Concomitant]
  5. DECADRON [Concomitant]

REACTIONS (6)
  - CSF MYELIN BASIC PROTEIN INCREASED [None]
  - DEMYELINATION [None]
  - DIFFICULTY IN WALKING [None]
  - DIZZINESS [None]
  - FALL [None]
  - MOTOR DYSFUNCTION [None]
